FAERS Safety Report 5142613-8 (Version None)
Quarter: 2006Q4

REPORT INFORMATION
  Report Type: 
  Country: None (occurrence: None)
  Receive Date: 20061027
  Receipt Date: 20061010
  Transmission Date: 20070319
  Serious: Yes (Hospitalization)
  Sender: FDA-Public Use
  Company Number: US200610001885

PATIENT
  Age: 37 Year
  Sex: Female

DRUGS (2)
  1. CYMBALTA [Suspect]
     Indication: PAIN
     Dosage: 60 MG
     Dates: start: 20060301, end: 20060901
  2. HORMONES AND RELATED AGENTS [Concomitant]

REACTIONS (12)
  - ABDOMINAL PAIN [None]
  - BLISTER [None]
  - CELLULITIS [None]
  - DRY SKIN [None]
  - HOT FLUSH [None]
  - NIGHT SWEATS [None]
  - OEDEMA PERIPHERAL [None]
  - PAIN [None]
  - PAIN IN EXTREMITY [None]
  - RASH [None]
  - SKIN EXFOLIATION [None]
  - SKIN WARM [None]
